FAERS Safety Report 4284157-1 (Version None)
Quarter: 2004Q1

REPORT INFORMATION
  Report Type: 
  Country: None (occurrence: None)
  Receive Date: 20040203
  Receipt Date: 20040122
  Transmission Date: 20041129
  Serious: Yes (Death, Hospitalization)
  Sender: FDA-Public Use
  Company Number: GB-GLAXOSMITHKLINE-B0320606A

PATIENT
  Age: 76 Year
  Sex: Male
  Weight: 70 kg

DRUGS (5)
  1. ZYBAN [Suspect]
     Route: 048
     Dates: start: 20010202, end: 20010302
  2. ASPIRIN [Concomitant]
     Route: 065
     Dates: start: 20010202
  3. GLYCERYL TRINITRATE [Concomitant]
     Route: 065
     Dates: start: 20010423
  4. CORACTEN [Concomitant]
     Route: 065
     Dates: start: 20010510
  5. CO-TENIDONE [Concomitant]
     Route: 065
     Dates: start: 19980407

REACTIONS (1)
  - SUDDEN DEATH [None]
